FAERS Safety Report 11805988 (Version 1)
Quarter: 2015Q4

REPORT INFORMATION
  Report Type: Spontaneous
  Country: US (occurrence: None)
  Receive Date: 20151204
  Receipt Date: 20151204
  Transmission Date: 20160305
  Serious: Yes (Other)
  Sender: FDA-Public Use
  Company Number: None

PATIENT
  Age: 4 Year
  Sex: Male
  Weight: 32.66 kg

DRUGS (2)
  1. GUANFACINE HCL ER 2 MG TAB ACTAVIS PHAR [Suspect]
     Active Substance: GUANFACINE HYDROCHLORIDE
     Indication: ATTENTION DEFICIT/HYPERACTIVITY DISORDER
  2. GUANFACINE HCL ER 1 MG TAB ACTAVIS PHAR. [Suspect]
     Active Substance: GUANFACINE HYDROCHLORIDE
     Indication: ATTENTION DEFICIT/HYPERACTIVITY DISORDER
     Dosage: THERAPY?AGE 4- 2013
     Route: 048
     Dates: end: 2013

REACTIONS (6)
  - Product substitution issue [None]
  - Aggression [None]
  - Abnormal behaviour [None]
  - Drug ineffective [None]
  - Emotional disorder [None]
  - Irritability [None]

NARRATIVE: CASE EVENT DATE: 201412
